FAERS Safety Report 10767107 (Version 1)
Quarter: 2015Q1

REPORT INFORMATION
  Report Type: Spontaneous
  Country: US (occurrence: US)
  Receive Date: 20150205
  Receipt Date: 20150205
  Transmission Date: 20150721
  Serious: No
  Sender: FDA-Public Use
  Company Number: US-BAYER-2015-011938

PATIENT
  Age: 73 Year
  Sex: Male

DRUGS (4)
  1. BAYER GENUINE ASPIRIN [Suspect]
     Active Substance: ASPIRIN
  2. MIRTAZAPINE. [Suspect]
     Active Substance: MIRTAZAPINE
     Indication: APPETITE DISORDER
     Dosage: 0.5 DF, UNK
  3. MIRTAZAPINE. [Suspect]
     Active Substance: MIRTAZAPINE
     Indication: SLEEP DISORDER THERAPY
     Dosage: 15 MG, QD
     Route: 048
     Dates: start: 201409, end: 2015
  4. ALEVE [Suspect]
     Active Substance: NAPROXEN SODIUM
     Dosage: 3 DF, QD
     Route: 048

REACTIONS (4)
  - Bone pain [Unknown]
  - Insomnia [Unknown]
  - Arthralgia [Unknown]
  - Blood pressure abnormal [Unknown]
